FAERS Safety Report 9163093 (Version 1)
Quarter: 2013Q1

REPORT INFORMATION
  Report Type: Spontaneous
  Country: RU (occurrence: RU)
  Receive Date: 20130314
  Receipt Date: 20130314
  Transmission Date: 20140127
  Serious: Yes (Death, Life-Threatening, Hospitalization)
  Sender: FDA-Public Use
  Company Number: RU-ROCHE-1200911

PATIENT
  Age: 40 Year
  Sex: Male

DRUGS (6)
  1. PEGASYS [Suspect]
     Indication: CHRONIC HEPATITIS B
     Route: 058
     Dates: start: 20110117, end: 201112
  2. MERCAZOLYLUM [Concomitant]
     Indication: HYPERTHYROIDISM
     Route: 065
  3. MERCAZOLYLUM [Concomitant]
     Route: 065
  4. MERCAZOLYLUM [Concomitant]
     Route: 065
  5. MERCAZOLYLUM [Concomitant]
     Route: 065
  6. ANAPRILIN [Concomitant]
     Route: 065

REACTIONS (7)
  - Hepatic failure [Fatal]
  - Basedow^s disease [Not Recovered/Not Resolved]
  - Drug-induced liver injury [Not Recovered/Not Resolved]
  - Pneumonia [Not Recovered/Not Resolved]
  - Arthralgia [Unknown]
  - Myalgia [Not Recovered/Not Resolved]
  - Tachycardia [Unknown]
